FAERS Safety Report 7958994-3 (Version None)
Quarter: 2011Q4

REPORT INFORMATION
  Report Type: 
  Country: None (occurrence: None)
  Receive Date: 20111206
  Receipt Date: 20111125
  Transmission Date: 20120403
  Serious: Yes (Death)
  Sender: FDA-Public Use
  Company Number: JP-NOVOPROD-339316

PATIENT

DRUGS (12)
  1. SENNOSIDE                          /00571901/ [Concomitant]
     Indication: CONSTIPATION
     Dosage: 48 MG, QD
     Route: 048
     Dates: end: 20111020
  2. MARZULENE                          /00317302/ [Concomitant]
     Indication: GASTRITIS
     Dosage: 1.5 G, QD
     Route: 048
     Dates: end: 20111020
  3. NIZATIDINE [Concomitant]
     Indication: GASTRITIS
     Dosage: 300 MG, QD
     Route: 048
     Dates: end: 20111020
  4. MICARDIS [Concomitant]
     Indication: HYPERTENSION
     Dosage: 20 MG, QD
     Route: 048
     Dates: end: 20111020
  5. AMARYL [Concomitant]
     Indication: TYPE 2 DIABETES MELLITUS
     Dosage: 0.5 MG, QD
     Route: 048
     Dates: start: 20110922, end: 20111020
  6. BEZATOL [Concomitant]
     Indication: DYSLIPIDAEMIA
     Dosage: 400 MG, QD
     Route: 048
     Dates: end: 20111020
  7. BIOFERMIN                          /01617201/ [Concomitant]
     Indication: ENTEROCOLITIS
     Dosage: 3 TAB, QD
     Route: 048
     Dates: end: 20111020
  8. VICTOZA [Suspect]
     Indication: TYPE 2 DIABETES MELLITUS
     Dosage: 0.3 MG, QD, IN THE MORNING
     Route: 058
     Dates: start: 20110922
  9. METFORMIN HCL [Concomitant]
     Indication: TYPE 2 DIABETES MELLITUS
     Dosage: 1500 MG, QD
     Route: 048
     Dates: start: 20110728, end: 20111020
  10. BASEN [Concomitant]
     Indication: TYPE 2 DIABETES MELLITUS
     Dosage: 0.6 MG, QD
     Route: 048
     Dates: end: 20111020
  11. KAMAG G [Concomitant]
     Indication: CONSTIPATION
     Dosage: 2 G, QD
     Route: 048
     Dates: end: 20111020
  12. MIGLITOL [Concomitant]
     Indication: TYPE 2 DIABETES MELLITUS
     Dosage: UNK
     Route: 048
     Dates: start: 20110728, end: 20111020

REACTIONS (4)
  - HYPOGLYCAEMIA [None]
  - BLOOD GLUCOSE DECREASED [None]
  - DECREASED APPETITE [None]
  - CARDIO-RESPIRATORY ARREST [None]
